FAERS Safety Report 15056951 (Version 2)
Quarter: 2018Q4

REPORT INFORMATION
  Report Type: Report from Study
  Country: US (occurrence: US)
  Receive Date: 20180624
  Receipt Date: 20181129
  Transmission Date: 20190204
  Serious: Yes (Other)
  Sender: FDA-Public Use
  Company Number: PHEH2018US024877

PATIENT
  Sex: Female

DRUGS (1)
  1. AFINITOR [Suspect]
     Active Substance: EVEROLIMUS
     Indication: ASTROCYTOMA, LOW GRADE
     Dosage: 7.5 MG, QD
     Route: 048
     Dates: start: 20150611

REACTIONS (6)
  - Syncope [Unknown]
  - Heart rate increased [Recovered/Resolved]
  - Diabetes mellitus [Unknown]
  - Blood glucose increased [Unknown]
  - Chest pain [Recovered/Resolved]
  - Glucose urine present [Unknown]
